FAERS Safety Report 16769560 (Version 2)
Quarter: 2019Q3

REPORT INFORMATION
  Report Type: Spontaneous
  Country: CN (occurrence: CN)
  Receive Date: 20190903
  Receipt Date: 20190927
  Transmission Date: 20191005
  Serious: Yes (Life-Threatening, Hospitalization, Other)
  Sender: FDA-Public Use
  Company Number: CN-NOVOPROD-681982

PATIENT
  Age: 25 Year
  Sex: Female
  Weight: 73 kg

DRUGS (2)
  1. INVOKANA [Concomitant]
     Active Substance: CANAGLIFLOZIN
     Indication: TYPE 2 DIABETES MELLITUS
     Dosage: 0.1 G, QD
     Route: 048
     Dates: start: 20190819, end: 20190823
  2. VICTOZA [Suspect]
     Active Substance: LIRAGLUTIDE
     Indication: TYPE 2 DIABETES MELLITUS
     Dosage: 0.6 MG, QD
     Route: 058
     Dates: start: 20190819, end: 20190823

REACTIONS (5)
  - Diabetic ketoacidosis [Recovering/Resolving]
  - Liver injury [Recovering/Resolving]
  - Weight decreased [Unknown]
  - Nephropathy [Recovering/Resolving]
  - Mental fatigue [Unknown]

NARRATIVE: CASE EVENT DATE: 20190819
